FAERS Safety Report 8837936 (Version 2)
Quarter: 2014Q3

REPORT INFORMATION
  Report Type: Report from Study
  Country: US (occurrence: US)
  Receive Date: 20121012
  Receipt Date: 20140822
  Transmission Date: 20150326
  Serious: Yes (Death, Other)
  Sender: FDA-Public Use
  Company Number: US-ROCHE-1144408

PATIENT
  Age: 69 Year
  Sex: Female

DRUGS (8)
  1. VITAMIN C [Concomitant]
     Active Substance: ASCORBIC ACID
  2. HERCEPTIN [Suspect]
     Active Substance: TRASTUZUMAB
     Indication: METASTASES TO LIVER
     Dosage: 336 MG LOADING DOSE, 168 MG MAINTENANCE DOSE.
     Route: 042
     Dates: start: 20010423
  3. HERCEPTIN [Suspect]
     Active Substance: TRASTUZUMAB
     Indication: HER-2 POSITIVE BREAST CANCER
  4. TAXOL [Concomitant]
     Active Substance: PACLITAXEL
     Indication: BREAST CANCER FEMALE
     Route: 042
     Dates: start: 20010423
  5. LASIX [Concomitant]
     Active Substance: FUROSEMIDE
     Route: 065
  6. LIPITOR [Concomitant]
     Active Substance: ATORVASTATIN CALCIUM
     Route: 065
  7. ASPIRIN. [Concomitant]
     Active Substance: ASPIRIN
     Route: 065
  8. HERCEPTIN [Suspect]
     Active Substance: TRASTUZUMAB
     Indication: BREAST CANCER FEMALE
     Dosage: OVER 45 MINUTES
     Route: 042
     Dates: start: 20010423

REACTIONS (14)
  - Ejection fraction decreased [Unknown]
  - Lymphoedema [Unknown]
  - Hypoaesthesia [Unknown]
  - Death [Fatal]
  - Chills [Unknown]
  - Fatigue [Unknown]
  - Arthralgia [Unknown]
  - Erythema [Unknown]
  - Anaemia [Unknown]
  - Oedema peripheral [Unknown]
  - Paraesthesia [Unknown]
  - Skin induration [Unknown]
  - Epistaxis [Unknown]
  - Neurotoxicity [Unknown]

NARRATIVE: CASE EVENT DATE: 20010423
